FAERS Safety Report 10735099 (Version 2)
Quarter: 2016Q2

REPORT INFORMATION
  Report Type: Spontaneous
  Country: MY (occurrence: MY)
  Receive Date: 20150124
  Receipt Date: 20160420
  Transmission Date: 20160815
  Serious: Yes (Death, Other)
  Sender: FDA-Public Use
  Company Number: MY-AMGEN-MYSSP2015005650

PATIENT
  Age: 26 Year
  Sex: Female

DRUGS (1)
  1. XGEVA [Suspect]
     Active Substance: DENOSUMAB
     Indication: PRODUCT USED FOR UNKNOWN INDICATION
     Dosage: 120 MG, ONCE EVERY 4-8 WEEKS
     Route: 058
     Dates: start: 20140401

REACTIONS (3)
  - Sepsis [Fatal]
  - Vitamin D deficiency [Unknown]
  - Hypocalcaemia [Unknown]

NARRATIVE: CASE EVENT DATE: 201404
